FAERS Safety Report 7512581-X (Version None)
Quarter: 2011Q2

REPORT INFORMATION
  Report Type: 
  Country: None (occurrence: None)
  Receive Date: 20110531
  Receipt Date: 20110520
  Transmission Date: 20111010
  Serious: Yes (Hospitalization, Other)
  Sender: FDA-Public Use
  Company Number: US-ASTRAZENECA-2010SE18604

PATIENT
  Age: 61 Year
  Sex: Female

DRUGS (1)
  1. RHINOCORT [Suspect]
     Route: 045

REACTIONS (5)
  - RADIOTHERAPY [None]
  - LUNG NEOPLASM [None]
  - BRAIN NEOPLASM [None]
  - TUMOUR EXCISION [None]
  - DISEASE PROGRESSION [None]
